FAERS Safety Report 9711731 (Version 1)
Quarter: 2013Q4

REPORT INFORMATION
  Report Type: Spontaneous
  Country: US (occurrence: US)
  Receive Date: 20131126
  Receipt Date: 20131126
  Transmission Date: 20140711
  Serious: No
  Sender: FDA-Public Use
  Company Number: US-BRISTOL-MYERS SQUIBB COMPANY-18792598

PATIENT
  Age: 73 Year
  Sex: Male
  Weight: 117.91 kg

DRUGS (3)
  1. BYDUREON [Suspect]
     Indication: WEIGHT DECREASED
     Dosage: FEB13,MAR13
     Route: 058
     Dates: start: 201301
  2. METFORMIN [Concomitant]
     Route: 048
  3. LANTUS [Concomitant]
     Route: 058

REACTIONS (1)
  - Injection site urticaria [Recovering/Resolving]
